FAERS Safety Report 19414176 (Version 2)
Quarter: 2021Q3

REPORT INFORMATION
  Report Type: Other
  Country: CA (occurrence: CA)
  Receive Date: 20210615
  Receipt Date: 20210719
  Transmission Date: 20211014
  Serious: Yes (Hospitalization, Other)
  Sender: FDA-Public Use
  Company Number: CA-INTERCEPT-PM2021001908

PATIENT
  Sex: Female

DRUGS (5)
  1. RIFAMPIN. [Concomitant]
     Active Substance: RIFAMPIN
     Dosage: UNK, EVERY SECOND DAY
  2. RIFAMPIN. [Concomitant]
     Active Substance: RIFAMPIN
     Dosage: UNK, QD
  3. URSODIOL. [Concomitant]
     Active Substance: URSODIOL
     Dosage: 1000 MG, QD
  4. OCALIVA [Suspect]
     Active Substance: OBETICHOLIC ACID
     Indication: PRIMARY BILIARY CHOLANGITIS
     Dosage: 5 MILLIGRAM, QD
     Route: 048
     Dates: start: 20190215
  5. INDAPAMIDE. [Concomitant]
     Active Substance: INDAPAMIDE
     Indication: BLOOD PRESSURE MEASUREMENT
     Dosage: 2.5 MILLIGRAM

REACTIONS (9)
  - Arterial injury [Unknown]
  - Carotid artery stent insertion [Recovered/Resolved]
  - Skin haemorrhage [Unknown]
  - Sleep disorder [Unknown]
  - Blood cholesterol abnormal [Unknown]
  - Drug intolerance [Recovered/Resolved]
  - Scratch [Unknown]
  - Blindness unilateral [Unknown]
  - Pruritus [Unknown]
